FAERS Safety Report 17896106 (Version 1)
Quarter: 2020Q2

REPORT INFORMATION
  Report Type: Spontaneous
  Country: DE (occurrence: DE)
  Receive Date: 20200615
  Receipt Date: 20200615
  Transmission Date: 20200714
  Serious: Yes (Hospitalization)
  Sender: FDA-Public Use
  Company Number: DE-SA-2020SA148419

PATIENT

DRUGS (11)
  1. NALOXONE;TILIDINE [Concomitant]
     Active Substance: NALOXONE HYDROCHLORIDE\TILIDINE HYDROCHLORIDE
     Dosage: 2 DF, QD(8|100 MG, 1-0-0-1)
  2. ONDANSETRON [Concomitant]
     Active Substance: ONDANSETRON
     Dosage: 2 DF, QD
  3. SPIOLTO RESPIMAT [Concomitant]
     Active Substance: OLODATEROL HYDROCHLORIDE\TIOTROPIUM BROMIDE MONOHYDRATE
     Dosage: 2.5|2.5 ?G, 1-0-0-0
  4. SILODOSIN. [Concomitant]
     Active Substance: SILODOSIN
     Dosage: 8 MG, QD (1-0-0-0)
  5. PREGABALIN. [Concomitant]
     Active Substance: PREGABALIN
     Dosage: 300 MG, QD (150 MG, 2-0-0-0)
  6. CALCIUM CARBONATE W/VITAMIN D [CALCIUM CARBONATE;COLECALCIFEROL] [Concomitant]
     Active Substance: CALCIUM CARBONATE\CHOLECALCIFEROL
     Dosage: 1250|400 MG/I.E., 1-0-1-0, KAUTABLETTEN
  7. PREDNISOLONE. [Suspect]
     Active Substance: PREDNISOLONE
     Dosage: 5 MG, 1-0-1-0
  8. DOCETAXEL. [Suspect]
     Active Substance: DOCETAXEL
     Dosage: 140 MG, ACCORDING TO SCHEME/PLAN
  9. ACETYLCYSTEINE. [Concomitant]
     Active Substance: ACETYLCYSTEINE
     Dosage: 600 MG, QD (1-0-0-0, EFFERVESCENT)
  10. AMITRIPTYLIN [Concomitant]
     Active Substance: AMITRIPTYLINE
     Dosage: 10 MG
  11. MIRTAZAPINE. [Concomitant]
     Active Substance: MIRTAZAPINE
     Dosage: 7.5 MG, QD (15 MG, 0-0-0.5-0)

REACTIONS (4)
  - Cough [Unknown]
  - General physical health deterioration [Unknown]
  - Pyrexia [Unknown]
  - Productive cough [Unknown]
